FAERS Safety Report 9443388 (Version 1)
Quarter: 2013Q3

REPORT INFORMATION
  Report Type: Spontaneous
  Country: US (occurrence: None)
  Receive Date: 20130802
  Receipt Date: 20130802
  Transmission Date: 20140515
  Serious: Yes (Other)
  Sender: FDA-Public Use
  Company Number: TPA2013A07232

PATIENT
  Age: 55 Year
  Sex: Female
  Weight: 79 kg

DRUGS (7)
  1. ACTOS [Suspect]
     Indication: TYPE 2 DIABETES MELLITUS
  2. REBIF [Suspect]
     Dosage: 3 IN 1 WEEK, SUBCUTANEOUS
     Route: 058
     Dates: start: 20070427
  3. ASPIRIN (ACETYLSALICYLIC ACID) [Concomitant]
  4. PHOSLO (CALCIUM ACETATE) [Concomitant]
  5. CRESTOR (ROSUVASTATIN CALCIUM) [Concomitant]
  6. GLUCOPHAGE (METFORMIN HYDROCHLORIDE) [Concomitant]
  7. VICTOZA (LIRAGLUTIDE) [Concomitant]

REACTIONS (4)
  - Bladder mass [None]
  - Urinary incontinence [None]
  - Blood glucose increased [None]
  - Injection site bruising [None]
